FAERS Safety Report 8970119 (Version 2)
Quarter: 2014Q2

REPORT INFORMATION
  Report Type: Spontaneous
  Country: US (occurrence: US)
  Receive Date: 20121218
  Receipt Date: 20131018
  Transmission Date: 20141212
  Serious: Yes (Other)
  Sender: FDA-Public Use
  Company Number: US-PFIZER INC-2012314958

PATIENT
  Age: 26 Year
  Sex: Female
  Weight: 53 kg

DRUGS (5)
  1. BUPIVACAINE HCL [Suspect]
     Indication: EPIDURAL ANALGESIA
     Dosage: 2.5 MG, SINGLE
     Route: 037
  2. LIDOCAINE HCL [Suspect]
     Indication: EPIDURAL ANALGESIA
     Dosage: 3-ML TEST DOSE OF 1.5%
  3. EPINEPHRINE [Suspect]
     Indication: EPIDURAL ANALGESIA
     Dosage: 15 UG, SINGLE
  4. FENTANYL [Suspect]
     Indication: EPIDURAL ANALGESIA
     Dosage: 25 UG, SINGLE
     Route: 037
  5. RINGER-LACTATE SOLUTION [Concomitant]
     Dosage: 1000 ML , UNK

REACTIONS (2)
  - Premature separation of placenta [Recovered/Resolved]
  - Uterine hypertonus [Recovered/Resolved]
